FAERS Safety Report 9331223 (Version 1)
Quarter: 2013Q2

REPORT INFORMATION
  Report Type: Spontaneous
  Country: US (occurrence: US)
  Receive Date: 20130605
  Receipt Date: 20130605
  Transmission Date: 20140414
  Serious: Yes (Hospitalization, Other)
  Sender: FDA-Public Use
  Company Number: US-SANOFI-AVENTIS-2013SA055807

PATIENT
  Sex: Female

DRUGS (4)
  1. LANTUS SOLOSTAR [Suspect]
     Dosage: DOSE:85 UNIT(S)
     Route: 051
  2. LANTUS SOLOSTAR [Suspect]
     Dosage: DOSE:40 UNIT(S)
     Route: 051
  3. SOLOSTAR [Suspect]
  4. FLEXPEN [Concomitant]

REACTIONS (3)
  - Diabetic ketoacidosis [Recovered/Resolved]
  - Abdominal pain upper [Recovered/Resolved]
  - Dyspnoea [Recovered/Resolved]
